FAERS Safety Report 13669253 (Version 2)
Quarter: 2017Q3

REPORT INFORMATION
  Report Type: Spontaneous
  Country: US (occurrence: US)
  Receive Date: 20170620
  Receipt Date: 20170814
  Transmission Date: 20171127
  Serious: No
  Sender: FDA-Public Use
  Company Number: US-XTTRIUM LABORATORIES, INC-2022271

PATIENT
  Sex: Male

DRUGS (1)
  1. CHLORHEXIDINE GLUCONATE. [Suspect]
     Active Substance: CHLORHEXIDINE GLUCONATE
     Indication: PRODUCT USED FOR UNKNOWN INDICATION
     Route: 002
     Dates: start: 20161227, end: 20161227

REACTIONS (1)
  - Dysgeusia [Unknown]
